FAERS Safety Report 14584002 (Version 2)
Quarter: 2018Q1

REPORT INFORMATION
  Report Type: Report from Study
  Country: US (occurrence: US)
  Receive Date: 20180228
  Receipt Date: 20180309
  Transmission Date: 20180509
  Serious: Yes (Hospitalization, Other)
  Sender: FDA-Public Use
  Company Number: US-BRISTOL-MYERS SQUIBB COMPANY-BMS-2018-017539

PATIENT
  Age: 57 Year
  Sex: Male
  Weight: 78.4 kg

DRUGS (1)
  1. NIVOLUMAB [Suspect]
     Active Substance: NIVOLUMAB
     Indication: SMALL CELL LUNG CANCER
     Dosage: 235 MG, UNK
     Route: 042
     Dates: start: 20171120, end: 20180207

REACTIONS (4)
  - Alanine aminotransferase increased [Recovering/Resolving]
  - Cardiac tamponade [Recovering/Resolving]
  - Atelectasis [Recovering/Resolving]
  - Aspartate aminotransferase increased [Recovering/Resolving]

NARRATIVE: CASE EVENT DATE: 20180213
